FAERS Safety Report 9063298 (Version 1)
Quarter: 2013Q1

REPORT INFORMATION
  Report Type: Spontaneous
  Country: DE (occurrence: DE)
  Receive Date: 20130131
  Receipt Date: 20130131
  Transmission Date: 20140127
  Serious: Yes (Congenital Anomaly)
  Sender: FDA-Public Use
  Company Number: DE-PFIZER INC-2013035711

PATIENT
  Sex: Male
  Weight: 2.74 kg

DRUGS (3)
  1. VENLAFAXINE HYDROCHLORIDE [Suspect]
     Indication: ANXIETY DISORDER
     Dosage: 225 MG, 1X/DAY, UNTIL 23 GESTATIONAL WEEK
     Route: 064
  2. VENLAFAXINE HYDROCHLORIDE [Suspect]
     Dosage: 150 MG, 1X/DAY
     Route: 064
  3. OPIPRAMOL [Concomitant]
     Dosage: 50 MG, 1X/DAY, UNTIL 23 GESTATIONAL WEEK

REACTIONS (5)
  - Maternal exposure timing unspecified [Unknown]
  - Neonatal respiratory depression [Unknown]
  - Apnoea neonatal [Unknown]
  - Polydactyly [Unknown]
  - Oxygen saturation decreased [Unknown]
